FAERS Safety Report 11178864 (Version 2)
Quarter: 2015Q3

REPORT INFORMATION
  Report Type: Spontaneous
  Country: US (occurrence: US)
  Receive Date: 20150610
  Receipt Date: 20150713
  Transmission Date: 20151125
  Serious: No
  Sender: FDA-Public Use
  Company Number: US-009507513-1505USA006550

PATIENT
  Age: 19 Year
  Sex: Female
  Weight: 113.38 kg

DRUGS (2)
  1. NEXPLANON [Suspect]
     Active Substance: ETONOGESTREL
     Indication: CONTRACEPTION
     Dosage: 1 ROD /3 YEARS
     Route: 059
     Dates: start: 20130219
  2. CITOPAN [Concomitant]

REACTIONS (3)
  - Menorrhagia [Not Recovered/Not Resolved]
  - Device deployment issue [Not Recovered/Not Resolved]
  - Medical device complication [Not Recovered/Not Resolved]

NARRATIVE: CASE EVENT DATE: 20150506
